FAERS Safety Report 15574853 (Version 1)
Quarter: 2018Q4

REPORT INFORMATION
  Report Type: Spontaneous
  Country: US (occurrence: US)
  Receive Date: 20181027
  Receipt Date: 20181027
  Transmission Date: 20190205
  Serious: Yes (Disabling, Other)
  Sender: FDA-Public Use
  Company Number: None

PATIENT
  Age: 49 Year
  Sex: Male
  Weight: 103.5 kg

DRUGS (4)
  1. L  ARGININE [Concomitant]
     Active Substance: ARGININE
  2. PROPECIA [Suspect]
     Active Substance: FINASTERIDE
     Indication: ALOPECIA
     Route: 048
     Dates: start: 20050601, end: 20140801
  3. PYCNOGENOL [Concomitant]
     Active Substance: DIETARY SUPPLEMENT
  4. COQ10 [Concomitant]
     Active Substance: UBIDECARENONE

REACTIONS (4)
  - Depression [None]
  - Libido decreased [None]
  - Erectile dysfunction [None]
  - Marital problem [None]
